FAERS Safety Report 11878598 (Version 1)
Quarter: 2015Q4

REPORT INFORMATION
  Report Type: Spontaneous
  Country: US (occurrence: US)
  Receive Date: 20151230
  Receipt Date: 20151230
  Transmission Date: 20160305
  Serious: Yes (Hospitalization)
  Sender: FDA-Public Use
  Company Number: US-BAYER-2015-497031

PATIENT
  Age: 21 Year
  Sex: Female
  Weight: 72.56 kg

DRUGS (1)
  1. MIRENA [Suspect]
     Active Substance: LEVONORGESTREL
     Indication: CONTRACEPTION
     Dosage: 20 MCG/24HR, CONT
     Route: 015
     Dates: start: 200509, end: 20140826

REACTIONS (10)
  - Menorrhagia [None]
  - Ectopic pregnancy [None]
  - Depression [None]
  - Intentional device misuse [None]
  - Dyspareunia [None]
  - Uterine perforation [None]
  - Device issue [None]
  - Dysmenorrhoea [None]
  - Maternal exposure before pregnancy [None]
  - Abdominal pain upper [None]

NARRATIVE: CASE EVENT DATE: 2005
